FAERS Safety Report 24163764 (Version 1)
Quarter: 2024Q3

REPORT INFORMATION
  Report Type: Spontaneous
  Country: CN (occurrence: CN)
  Receive Date: 20240801
  Receipt Date: 20240801
  Transmission Date: 20241017
  Serious: Yes (Other)
  Sender: GALDERMA
  Company Number: CN-GALDERMA-CN2024011806

PATIENT

DRUGS (4)
  1. BENZOYL PEROXIDE [Suspect]
     Active Substance: BENZOYL PEROXIDE
     Indication: Acne
     Dosage: 0.15 GRAM, QD
     Route: 061
     Dates: start: 20211229, end: 20220101
  2. BENZOYL PEROXIDE [Suspect]
     Active Substance: BENZOYL PEROXIDE
     Dosage: 0.15 GRAM, QD
     Route: 061
     Dates: start: 20220108, end: 20220112
  3. ADAPALENE [Concomitant]
     Active Substance: ADAPALENE
     Indication: Acne
     Dosage: 0.15 GRAM, QD
     Route: 061
     Dates: start: 20211229, end: 20220101
  4. ADAPALENE [Concomitant]
     Active Substance: ADAPALENE
     Dosage: 0.15 GRAM, QD
     Route: 061
     Dates: start: 20220108, end: 20220112

REACTIONS (5)
  - Skin exfoliation [Recovered/Resolved]
  - Erythema [Recovered/Resolved]
  - Swelling face [Recovered/Resolved]
  - Pain of skin [Recovered/Resolved]
  - Pruritus [Recovered/Resolved]

NARRATIVE: CASE EVENT DATE: 20211231
